FAERS Safety Report 12790595 (Version 2)
Quarter: 2016Q3

REPORT INFORMATION
  Report Type: Spontaneous
  Country: US (occurrence: US)
  Receive Date: 20160929
  Receipt Date: 20160930
  Transmission Date: 20161109
  Serious: No
  Sender: FDA-Public Use
  Company Number: US-HORIZON-RAV-0191-2016

PATIENT
  Age: 40 Year
  Sex: Female

DRUGS (3)
  1. RAVICTI [Suspect]
     Active Substance: GLYCEROL PHENYLBUTYRATE
     Indication: ORNITHINE TRANSCARBAMOYLASE DEFICIENCY
     Dosage: 5 ML TID
     Dates: start: 20160630
  2. LACTULOSE. [Concomitant]
     Active Substance: LACTULOSE
  3. CITRULLINE [Concomitant]
     Active Substance: CITRULLINE

REACTIONS (8)
  - Cough [Recovering/Resolving]
  - Lethargy [Recovering/Resolving]
  - Infection [Recovering/Resolving]
  - Hyperhidrosis [Recovering/Resolving]
  - Paranasal sinus hypersecretion [Recovering/Resolving]
  - Malaise [Recovering/Resolving]
  - Somnolence [Recovering/Resolving]
  - Night sweats [Recovering/Resolving]

NARRATIVE: CASE EVENT DATE: 201609
